FAERS Safety Report 7824350-1 (Version None)
Quarter: 2011Q4

REPORT INFORMATION
  Report Type: 
  Country: None (occurrence: None)
  Receive Date: 20111018
  Receipt Date: 20111018
  Transmission Date: 20120403
  Serious: No
  Sender: FDA-Public Use
  Company Number: None

PATIENT
  Age: 63 Year
  Sex: Female
  Weight: 85.9 kg

DRUGS (2)
  1. SULFAMETHOXAZOLE AND TRIMETHOPRIM DOUBLE STRENGTH [Suspect]
     Dosage: ONE TAB BID PO 9/13/11 X 1 DOSE
     Route: 048
  2. NITROFURANTOIN [Suspect]
     Dosage: 100MG Q12H PO 9/14/11 X 1 DOSE
     Route: 048

REACTIONS (1)
  - RASH [None]
